FAERS Safety Report 5930088-8 (Version None)
Quarter: 2008Q4

REPORT INFORMATION
  Report Type: 
  Country: None (occurrence: None)
  Receive Date: 20081024
  Receipt Date: 20081020
  Transmission Date: 20090506
  Serious: No
  Sender: FDA-Public Use
  Company Number: US-B.I. PHARMACEUTICALS,INC./RIDGEFIELD-2008-BP-15300BP

PATIENT
  Age: 66 Year
  Sex: Male
  Weight: 84 kg

DRUGS (6)
  1. MICARDIS [Suspect]
     Indication: HYPERTENSION
     Dosage: 80MG
     Route: 048
     Dates: start: 20080903, end: 20080908
  2. PROVENTIL-HFA [Concomitant]
  3. SYNTHROID [Concomitant]
  4. FORADIL [Concomitant]
  5. SPIRIVA [Concomitant]
     Dosage: 18MCG
     Route: 055
  6. SINGULAIR [Concomitant]
     Dosage: 10MG
     Route: 048

REACTIONS (3)
  - RASH [None]
  - RASH ERYTHEMATOUS [None]
  - RASH GENERALISED [None]
